FAERS Safety Report 18240700 (Version 1)
Quarter: 2020Q3

REPORT INFORMATION
  Report Type: Spontaneous
  Country: US (occurrence: US)
  Receive Date: 20200908
  Receipt Date: 20200908
  Transmission Date: 20201103
  Serious: Yes (Hospitalization, Other)
  Sender: FDA-Public Use
  Company Number: US-HIKMA PHARMACEUTICALS USA INC.-US-H14001-20-04202

PATIENT
  Age: 37 Year
  Sex: Male

DRUGS (3)
  1. MYCOPHENOLATE MOFETIL. [Concomitant]
     Active Substance: MYCOPHENOLATE MOFETIL
     Indication: SYSTEMIC SCLERODERMA
     Dosage: UNKNOWN
     Route: 065
  2. PREDNISONE. [Suspect]
     Active Substance: PREDNISONE
     Indication: PRODUCT USED FOR UNKNOWN INDICATION
     Route: 048
  3. BEVACIZUMAB. [Suspect]
     Active Substance: BEVACIZUMAB
     Indication: RETINAL EXUDATES
     Dosage: 2 DOSAGE FORM
     Route: 047

REACTIONS (5)
  - Condition aggravated [Unknown]
  - Scleroderma renal crisis [Unknown]
  - Systemic scleroderma [Unknown]
  - Malignant hypertension [Unknown]
  - Thrombotic microangiopathy [Unknown]
